FAERS Safety Report 5372043-5 (Version None)
Quarter: 2007Q2

REPORT INFORMATION
  Report Type: 
  Country: None (occurrence: None)
  Receive Date: 20070625
  Receipt Date: 20070619
  Transmission Date: 20071010
  Serious: Yes (Hospitalization, Other)
  Sender: FDA-Public Use
  Company Number: 2007SP012283

PATIENT
  Age: 16 Year
  Sex: Male
  Weight: 55 kg

DRUGS (9)
  1. TEMODAL [Suspect]
     Indication: ASTROCYTOMA
     Dosage: SEE IMAGE
     Route: 047
     Dates: start: 20070205
  2. TEMODAL [Suspect]
     Indication: ASTROCYTOMA
     Dosage: SEE IMAGE
     Route: 047
     Dates: start: 20070528
  3. ETOPOSIDE [Suspect]
     Indication: ASTROCYTOMA
     Dosage: SEE IMAGE
     Route: 042
     Dates: start: 20070205
  4. ETOPOSIDE [Suspect]
     Indication: ASTROCYTOMA
     Dosage: SEE IMAGE
     Route: 042
     Dates: start: 20070528
  5. RANITIDINE (CON.) [Concomitant]
  6. CODEINE (CON.) [Concomitant]
  7. SEPTRA (CON.) [Concomitant]
  8. VITAMIN D (CON.) [Concomitant]
  9. ONDANSETRON (CON.) [Concomitant]

REACTIONS (11)
  - ABDOMINAL PAIN [None]
  - ASTHENIA [None]
  - BACK PAIN [None]
  - DIARRHOEA [None]
  - ENTERITIS [None]
  - FATIGUE [None]
  - GASTROINTESTINAL HYPERMOTILITY [None]
  - ORAL INTAKE REDUCED [None]
  - PAIN IN EXTREMITY [None]
  - PYREXIA [None]
  - VOMITING [None]
